FAERS Safety Report 9319431 (Version 1)
Quarter: 2013Q2

REPORT INFORMATION
  Report Type: Spontaneous
  Country: US (occurrence: US)
  Receive Date: 20130530
  Receipt Date: 20130530
  Transmission Date: 20140414
  Serious: No
  Sender: FDA-Public Use
  Company Number: US-GLAXOSMITHKLINE-A0980461A

PATIENT
  Age: 46 Year
  Sex: Female

DRUGS (1)
  1. FLOLAN [Suspect]
     Dosage: 10NGKM UNKNOWN
     Route: 042
     Dates: start: 20120515

REACTIONS (5)
  - Headache [Recovering/Resolving]
  - Feeling hot [Recovering/Resolving]
  - Pain in extremity [Recovering/Resolving]
  - Accidental overdose [Recovering/Resolving]
  - Ill-defined disorder [Unknown]
